APPROVED DRUG PRODUCT: TROMETHAMINE
Active Ingredient: TROMETHAMINE
Strength: 18GM/500ML (3.6GM/100ML)
Dosage Form/Route: SOLUTION;INJECTION
Application: A213116 | Product #001 | TE Code: AP
Applicant: MILLA PHARMACEUTICALS INC
Approved: Dec 31, 2024 | RLD: No | RS: No | Type: RX